FAERS Safety Report 20073701 (Version 2)
Quarter: 2021Q4

REPORT INFORMATION
  Report Type: Spontaneous
  Country: CA (occurrence: CA)
  Receive Date: 20211116
  Receipt Date: 20211125
  Transmission Date: 20220303
  Serious: Yes (Hospitalization, Other)
  Sender: FDA-Public Use
  Company Number: CA-APOTEX-2021AP045362

PATIENT
  Age: 27 Year
  Sex: Male

DRUGS (25)
  1. CLOZAPINE [Suspect]
     Active Substance: CLOZAPINE
     Indication: Product used for unknown indication
     Dosage: 25 MILLIGRAM, QD (DAY 1 TO 6)
     Route: 048
     Dates: start: 202001
  2. CLOZAPINE [Suspect]
     Active Substance: CLOZAPINE
     Dosage: 25 MILLIGRAM, BID (DAY 7 TO 8)
     Route: 048
     Dates: start: 202001
  3. CLOZAPINE [Suspect]
     Active Substance: CLOZAPINE
     Dosage: 37.5 MILLIGRAM, BID (DAY 9 TO 10)
     Route: 048
     Dates: start: 202001
  4. CLOZAPINE [Suspect]
     Active Substance: CLOZAPINE
     Dosage: 50 MILLIGRAM, BID (DAY 11 TO 16)
     Route: 048
     Dates: start: 202001
  5. CLOZAPINE [Suspect]
     Active Substance: CLOZAPINE
     Dosage: 6.25 MILLIGRAM, Q.H.S. (DAY 1 TO 3)
     Route: 048
  6. CLOZAPINE [Suspect]
     Active Substance: CLOZAPINE
     Dosage: 12.5 MILLIGRAM, Q.H.S. (DAY 4 TO 8)
     Route: 048
  7. CLOZAPINE [Suspect]
     Active Substance: CLOZAPINE
     Dosage: 18.75 MILLIGRAM, Q.H.S. (DAY 8 TO 11)
     Route: 048
  8. CLOZAPINE [Suspect]
     Active Substance: CLOZAPINE
     Dosage: 25 MILLIGRAM, Q.H.S. (DAY 12 TO 14)
     Route: 048
  9. CLOZAPINE [Suspect]
     Active Substance: CLOZAPINE
     Dosage: 31.25 MILLIGRAM, Q.H.S. (DAY 14 TO 17)
     Route: 048
  10. CLOZAPINE [Suspect]
     Active Substance: CLOZAPINE
     Dosage: 37.5 MILLIGRAM, Q.H.S. (DAY 17 TO 24)
     Route: 048
  11. CLOZAPINE [Suspect]
     Active Substance: CLOZAPINE
     Dosage: 43.75 MILLIGRAM, Q.H.S. (DAY 25 TO 31)
     Route: 048
  12. CLOZAPINE [Suspect]
     Active Substance: CLOZAPINE
     Dosage: 50 MILLIGRAM, Q.H.S. (DAY 32 TO 37)
     Route: 048
  13. CLOZAPINE [Suspect]
     Active Substance: CLOZAPINE
     Dosage: 56.25 MILLIGRAM, Q.H.S. (DAY 38 TO 43)
     Route: 048
  14. CLOZAPINE [Suspect]
     Active Substance: CLOZAPINE
     Dosage: 62.5 MILLIGRAM, Q.H.S. (DAY 44 TO 47)
     Route: 048
  15. CLOZAPINE [Suspect]
     Active Substance: CLOZAPINE
     Dosage: 68.75 MILLIGRAM, Q.H.S. (DAY 48 TO 53)
     Route: 048
  16. CLOZAPINE [Suspect]
     Active Substance: CLOZAPINE
     Dosage: 75 MILLIGRAM, Q.H.S. (DAY 54 TO 59)
     Route: 048
  17. RISPERIDONE [Suspect]
     Active Substance: RISPERIDONE
     Indication: Product used for unknown indication
     Dosage: UNK
     Route: 065
  18. LOXAPINE [Suspect]
     Active Substance: LOXAPINE
     Indication: Product used for unknown indication
     Dosage: 60 MILLIGRAM, QD
     Route: 048
  19. OLANZAPINE [Suspect]
     Active Substance: OLANZAPINE
     Indication: Psychotic symptom
     Dosage: 5 MILLIGRAM, Q.AM
     Route: 065
  20. OLANZAPINE [Suspect]
     Active Substance: OLANZAPINE
     Dosage: 20 MILLIGRAM, Q.H.S.
     Route: 065
  21. ARIPIPRAZOLE [Suspect]
     Active Substance: ARIPIPRAZOLE
     Indication: Product used for unknown indication
     Dosage: 400 MILLIGRAM
     Route: 030
  22. ZUCLOPENTHIXOL [Suspect]
     Active Substance: ZUCLOPENTHIXOL
     Indication: Agitation
     Dosage: 80 MILLIGRAM, QD
     Route: 048
  23. ZUCLOPENTHIXOL ACETATE [Suspect]
     Active Substance: ZUCLOPENTHIXOL ACETATE
     Indication: Agitation
     Dosage: 100 MILLIGRAM
     Route: 030
  24. PALIPERIDONE [Suspect]
     Active Substance: PALIPERIDONE
     Indication: Product used for unknown indication
     Dosage: UNK
     Route: 065
  25. LURASIDONE [Suspect]
     Active Substance: LURASIDONE
     Indication: Product used for unknown indication
     Dosage: UNK
     Route: 065

REACTIONS (6)
  - Troponin I increased [Recovered/Resolved]
  - Antipsychotic drug level increased [Unknown]
  - Hypometabolism [Unknown]
  - Myocarditis [Recovered/Resolved]
  - Sinus tachycardia [Recovered/Resolved]
  - Drug ineffective [Unknown]
